FAERS Safety Report 4703290-0 (Version None)
Quarter: 2005Q2

REPORT INFORMATION
  Report Type: 
  Country: None (occurrence: None)
  Receive Date: 20050629
  Receipt Date: 20050309
  Transmission Date: 20051028
  Serious: Yes (Hospitalization, Other)
  Sender: FDA-Public Use
  Company Number: US-MERCK-0503USA01940

PATIENT
  Age: 52 Year
  Sex: Male
  Weight: 100 kg

DRUGS (6)
  1. VIOXX [Suspect]
     Indication: ARTHRITIS
     Route: 048
     Dates: start: 20000101, end: 20040930
  2. VIOXX [Suspect]
     Route: 048
     Dates: start: 20000101, end: 20040930
  3. TYLENOL [Concomitant]
     Route: 065
  4. ZESTRIL [Concomitant]
     Route: 065
     Dates: start: 20020101
  5. ZESTORETIC [Concomitant]
     Route: 065
     Dates: start: 20020101
  6. CELEBREX [Concomitant]
     Route: 065
     Dates: end: 20020101

REACTIONS (21)
  - ANGINA PECTORIS [None]
  - ATHEROSCLEROSIS [None]
  - BACK PAIN [None]
  - CARDIAC ARREST [None]
  - CARDIAC FAILURE CONGESTIVE [None]
  - CORONARY ARTERY DISEASE [None]
  - DIZZINESS [None]
  - DYSPEPSIA [None]
  - DYSPNOEA [None]
  - FLATULENCE [None]
  - GASTRIC DISORDER [None]
  - HERNIA [None]
  - HYPERTENSION [None]
  - MYOCARDIAL INFARCTION [None]
  - PALPITATIONS [None]
  - SHOULDER PAIN [None]
  - SUDDEN CARDIAC DEATH [None]
  - SUPRAVENTRICULAR TACHYCARDIA [None]
  - VENTRICULAR ARRHYTHMIA [None]
  - VENTRICULAR FIBRILLATION [None]
  - VENTRICULAR TACHYCARDIA [None]
